FAERS Safety Report 10476874 (Version 2)
Quarter: 2014Q4

REPORT INFORMATION
  Report Type: Report from Study
  Country: AU (occurrence: AU)
  Receive Date: 20140926
  Receipt Date: 20141107
  Transmission Date: 20150528
  Serious: Yes (Hospitalization)
  Sender: FDA-Public Use
  Company Number: AU-ROCHE-1466866

PATIENT
  Age: 72 Year
  Sex: Male

DRUGS (8)
  1. COPLAVIX [Concomitant]
     Active Substance: ASPIRIN\CLOPIDOGREL BISULFATE
     Dosage: 10/75 UNIT NOT REPORTED
     Route: 065
  2. ESOMEPRAZOLE [Concomitant]
     Active Substance: ESOMEPRAZOLE
     Route: 065
  3. ATORVASTATIN [Concomitant]
     Active Substance: ATORVASTATIN
     Route: 048
  4. FRUSEMIDE [Concomitant]
     Active Substance: FUROSEMIDE
     Route: 048
  5. ZELBORAF [Suspect]
     Active Substance: VEMURAFENIB
     Indication: METASTATIC MALIGNANT MELANOMA
     Route: 048
     Dates: start: 2013, end: 20140114
  6. BISOPROLOL [Concomitant]
     Active Substance: BISOPROLOL
     Route: 065
  7. PERINDOPRIL [Concomitant]
     Active Substance: PERINDOPRIL
     Route: 065
  8. METFORMIN [Concomitant]
     Active Substance: METFORMIN HYDROCHLORIDE
     Route: 048

REACTIONS (1)
  - Cardiomyopathy [Unknown]

NARRATIVE: CASE EVENT DATE: 20140614
